FAERS Safety Report 15127044 (Version 1)
Quarter: 2018Q3

REPORT INFORMATION
  Report Type: Spontaneous
  Country: US (occurrence: US)
  Receive Date: 20180614
  Receipt Date: 20180614
  Transmission Date: 20181010
  Serious: No
  Sender: FDA-Public Use
  Company Number: None

PATIENT
  Sex: Male

DRUGS (2)
  1. CYCLOSPORINE SAMPLES ABBVIE [Suspect]
     Active Substance: CYCLOSPORINE
     Indication: ARTERITIS
  2. CYCLOSPORINE SAMPLES ABBVIE [Suspect]
     Active Substance: CYCLOSPORINE
     Indication: SYSTEMIC SCLERODERMA

REACTIONS (1)
  - Vomiting [None]
